FAERS Safety Report 19557927 (Version 1)
Quarter: 2021Q3

REPORT INFORMATION
  Report Type: Spontaneous
  Country: US (occurrence: US)
  Receive Date: 20210714
  Receipt Date: 20210714
  Transmission Date: 20211014
  Serious: Yes (Other)
  Sender: FDA-Public Use
  Company Number: US-LUPIN PHARMACEUTICALS INC.-2021-11837

PATIENT
  Age: 68 Year
  Sex: Male

DRUGS (5)
  1. ASPIRIN. [Concomitant]
     Active Substance: ASPIRIN
     Indication: CORONARY ARTERY DISEASE
     Dosage: 81 MILLIGRAM
     Route: 065
  2. APIXABAN [Interacting]
     Active Substance: APIXABAN
     Dosage: 5 MILLIGRAM, BID
     Route: 065
  3. APIXABAN [Interacting]
     Active Substance: APIXABAN
     Indication: PROPHYLAXIS
     Dosage: 5 MILLIGRAM, BID
     Route: 065
  4. AZITHROMYCIN ANHYDROUS. [Suspect]
     Active Substance: AZITHROMYCIN ANHYDROUS
     Indication: INFLUENZA LIKE ILLNESS
     Dosage: 250 MILLIGRAM, QD, PRESCRIBED FOR 5 DAYS
     Route: 065
  5. APIXABAN [Interacting]
     Active Substance: APIXABAN
     Dosage: 2.5 MILLIGRAM, BID, LOWERED TO HALF
     Route: 065

REACTIONS (2)
  - Abdominal wall haematoma [Recovering/Resolving]
  - Drug interaction [Unknown]
